FAERS Safety Report 7321667-4 (Version None)
Quarter: 2011Q1

REPORT INFORMATION
  Report Type: 
  Country: None (occurrence: None)
  Receive Date: 20110228
  Receipt Date: 20101210
  Transmission Date: 20110831
  Serious: No
  Sender: FDA-Public Use
  Company Number: A0899763A

PATIENT
  Sex: Female

DRUGS (2)
  1. VALACYCLOVIR [Suspect]
     Indication: ILL-DEFINED DISORDER
     Route: 048
  2. VALTREX [Suspect]
     Indication: ILL-DEFINED DISORDER
     Dosage: 1CAPL PER DAY
     Route: 048

REACTIONS (5)
  - PAIN [None]
  - THERAPEUTIC RESPONSE DECREASED [None]
  - STRESS [None]
  - ILL-DEFINED DISORDER [None]
  - CONDITION AGGRAVATED [None]
